FAERS Safety Report 19669036 (Version 1)
Quarter: 2021Q3

REPORT INFORMATION
  Report Type: Spontaneous
  Country: US (occurrence: US)
  Receive Date: 20210806
  Receipt Date: 20210806
  Transmission Date: 20211014
  Serious: No
  Sender: FDA-Public Use
  Company Number: US-AURINIA PHARMACEUTICALS INC.-AUR-000114

PATIENT
  Age: 56 Year
  Sex: Female

DRUGS (4)
  1. LUPKYNIS [Suspect]
     Active Substance: VOCLOSPORIN
     Indication: LUPUS NEPHRITIS
     Dosage: 23.7 MILLIGRAM, BID
     Route: 048
     Dates: start: 20210421, end: 20210519
  2. LUPKYNIS [Suspect]
     Active Substance: VOCLOSPORIN
     Dosage: 23.7 MILLIGRAM, BID
     Route: 048
  3. LUPKYNIS [Suspect]
     Active Substance: VOCLOSPORIN
     Dosage: 7.9 MG ? TAKE 3 CAPSULES TWICE DAILY, ORAL
     Route: 048
     Dates: start: 202105
  4. PREDNISONE. [Concomitant]
     Active Substance: PREDNISONE
     Indication: PRODUCT USED FOR UNKNOWN INDICATION

REACTIONS (6)
  - Infection reactivation [Not Recovered/Not Resolved]
  - Therapy interrupted [Unknown]
  - Product packaging difficult to open [Unknown]
  - Unevaluable event [Unknown]
  - Product storage error [Unknown]
  - Skin papilloma [Not Recovered/Not Resolved]

NARRATIVE: CASE EVENT DATE: 20210520
